FAERS Safety Report 21722417 (Version 1)
Quarter: 2022Q4

REPORT INFORMATION
  Report Type: Spontaneous
  Country: US (occurrence: US)
  Receive Date: 20221213
  Receipt Date: 20221213
  Transmission Date: 20230113
  Serious: Yes (Hospitalization, Other)
  Sender: FDA-Public Use
  Company Number: US-CHEPLA-2022011975

PATIENT
  Sex: Male

DRUGS (10)
  1. HYDROXYUREA [Suspect]
     Active Substance: HYDROXYUREA
     Indication: Product used for unknown indication
  2. JAKAFI [Suspect]
     Active Substance: RUXOLITINIB
     Indication: Myelofibrosis
     Dosage: DAILY DOSE: 20 MILLIGRAM
     Route: 048
     Dates: start: 20221021, end: 20221021
  3. JAKAFI [Suspect]
     Active Substance: RUXOLITINIB
     Indication: Myelofibrosis
     Dosage: FREQUENCY:TWICE DAILY?DAILY DOSE: 40 MILLIGRAM
     Route: 048
     Dates: start: 20221022
  4. ISOSORBIDE MONONITRATE [Concomitant]
     Active Substance: ISOSORBIDE MONONITRATE
  5. CLOPIDOGREL [Concomitant]
     Active Substance: CLOPIDOGREL BISULFATE
  6. METOPROLOL [Concomitant]
     Active Substance: METOPROLOL
  7. ATORVASTATIN [Concomitant]
     Active Substance: ATORVASTATIN
  8. PREDNISONE [Concomitant]
     Active Substance: PREDNISONE
  9. METHOTREXATE [Concomitant]
     Active Substance: METHOTREXATE
  10. FOLIC ACID [Concomitant]
     Active Substance: FOLIC ACID

REACTIONS (8)
  - Endocarditis [Not Recovered/Not Resolved]
  - Full blood count decreased [Unknown]
  - Rheumatoid arthritis [Unknown]
  - Anaemia [Unknown]
  - White blood cell count decreased [Unknown]
  - Platelet count decreased [Unknown]
  - Fatigue [Unknown]
  - Diarrhoea [Unknown]

NARRATIVE: CASE EVENT DATE: 20220101
